FAERS Safety Report 19430795 (Version 1)
Quarter: 2021Q2

REPORT INFORMATION
  Report Type: Spontaneous
  Country: DE (occurrence: DE)
  Receive Date: 20210617
  Receipt Date: 20210617
  Transmission Date: 20210717
  Serious: Yes (Hospitalization, Disabling, Other)
  Sender: FDA-Public Use
  Company Number: DE-PFIZER INC-2021646244

PATIENT
  Sex: Female

DRUGS (1)
  1. CYTOTEC [Suspect]
     Active Substance: MISOPROSTOL
     Dosage: SEVERAL TIMES
     Route: 064
     Dates: start: 2009

REACTIONS (7)
  - Cyanosis neonatal [Recovered/Resolved with Sequelae]
  - Autism spectrum disorder [Not Recovered/Not Resolved]
  - Neonatal hypoxia [Recovered/Resolved with Sequelae]
  - Developmental delay [Not Recovered/Not Resolved]
  - Maternal exposure during pregnancy [Not Recovered/Not Resolved]
  - Foetal heart rate abnormal [Recovered/Resolved with Sequelae]
  - Streptococcal sepsis [Recovered/Resolved]

NARRATIVE: CASE EVENT DATE: 2009
